FAERS Safety Report 17461768 (Version 3)
Quarter: 2020Q1

REPORT INFORMATION
  Report Type: Report from Study
  Country: US (occurrence: US)
  Receive Date: 20200226
  Receipt Date: 20200324
  Transmission Date: 20200409
  Serious: Yes (Other)
  Sender: FDA-Public Use
  Company Number: US-ROCHE-2548254

PATIENT
  Age: 70 Year
  Sex: Female
  Weight: 61.29 kg

DRUGS (6)
  1. PROZAC [Concomitant]
     Active Substance: FLUOXETINE HYDROCHLORIDE
     Indication: DEPRESSION
     Dosage: ONGOING-YES
     Route: 048
  2. CALTRATE [CALCIUM CARBONATE;COLECALCIFEROL] [Concomitant]
     Dosage: ONGOING-YES
     Route: 048
  3. OCREVUS [Suspect]
     Active Substance: OCRELIZUMAB
     Indication: RELAPSING-REMITTING MULTIPLE SCLEROSIS
     Route: 042
     Dates: start: 201706
  4. CANNABIS SATIVA [Concomitant]
     Active Substance: CANNABIS SATIVA FLOWERING TOP
     Indication: MUSCLE SPASMS
  5. FOLIC ACID. [Concomitant]
     Active Substance: FOLIC ACID
     Dosage: ONGOING-YES
     Route: 048
  6. NALTREXONE [Concomitant]
     Active Substance: NALTREXONE
     Dosage: ONGOING-YES
     Route: 048

REACTIONS (6)
  - Multiple sclerosis relapse [Not Recovered/Not Resolved]
  - Bowel movement irregularity [Not Recovered/Not Resolved]
  - Hypokinesia [Not Recovered/Not Resolved]
  - Dysphonia [Not Recovered/Not Resolved]
  - Urinary tract infection [Not Recovered/Not Resolved]
  - Muscular weakness [Not Recovered/Not Resolved]

NARRATIVE: CASE EVENT DATE: 201911
